FAERS Safety Report 15350653 (Version 1)
Quarter: 2018Q3

REPORT INFORMATION
  Report Type: Spontaneous
  Country: FR (occurrence: FR)
  Receive Date: 20180905
  Receipt Date: 20180905
  Transmission Date: 20181010
  Serious: Yes (Death, Hospitalization, Other)
  Sender: FDA-Public Use
  Company Number: FR-ABBVIE-18K-056-2409459-00

PATIENT
  Age: 58 Year
  Sex: Male
  Weight: 98 kg

DRUGS (20)
  1. DUODOPA [Suspect]
     Active Substance: CARBIDOPA\LEVODOPA
     Dosage: 7 ML/H DURING THE DAY, 5 ML/H DURING THE NIGHT
     Route: 050
     Dates: start: 20171102, end: 201801
  2. DUODOPA [Suspect]
     Active Substance: CARBIDOPA\LEVODOPA
     Dosage: 10ML BOLUS UPON WAKING, 5.5 ML/H DURING THE DAY, 4 ML/H DURING?THE NIGHT
     Route: 050
     Dates: start: 201801, end: 201804
  3. GABAPENTIN. [Concomitant]
     Active Substance: GABAPENTIN
     Indication: PRODUCT USED FOR UNKNOWN INDICATION
     Dates: start: 201804
  4. LYSANXIA [Concomitant]
     Active Substance: PRAZEPAM
     Indication: PRODUCT USED FOR UNKNOWN INDICATION
     Route: 048
     Dates: start: 201711
  5. MODOPAR 200/50 [Concomitant]
     Indication: PRODUCT USED FOR UNKNOWN INDICATION
     Dates: start: 201804
  6. TRAMADOL. [Concomitant]
     Active Substance: TRAMADOL
     Indication: PAIN
  7. MODOPAR 100/25 [Concomitant]
     Dates: start: 201801, end: 201804
  8. SINEMET [Concomitant]
     Active Substance: CARBIDOPA\LEVODOPA
     Indication: PARKINSON^S DISEASE
     Dates: start: 201804
  9. TOLCAPONE. [Concomitant]
     Active Substance: TOLCAPONE
     Dates: start: 201711
  10. DUODOPA [Suspect]
     Active Substance: CARBIDOPA\LEVODOPA
     Indication: PARKINSON^S DISEASE
     Route: 050
     Dates: start: 20171102, end: 201804
  11. MODOPAR 100/25 [Concomitant]
     Dates: start: 201711, end: 201801
  12. VENLAFAXINE [Concomitant]
     Active Substance: VENLAFAXINE HYDROCHLORIDE
     Indication: PRODUCT USED FOR UNKNOWN INDICATION
     Dates: start: 201711
  13. GUTRON [Concomitant]
     Active Substance: MIDODRINE
     Indication: PRODUCT USED FOR UNKNOWN INDICATION
     Dates: start: 201610
  14. TOLCAPONE. [Concomitant]
     Active Substance: TOLCAPONE
     Indication: PARKINSON^S DISEASE
     Dates: start: 201509, end: 201511
  15. VITAMIN B1 AND B6 [Concomitant]
     Active Substance: PYRIDOXINE HYDROCHLORIDE\THIAMINE HYDROCHLORIDE
     Indication: PRODUCT USED FOR UNKNOWN INDICATION
  16. STILNOX [Concomitant]
     Active Substance: ZOLPIDEM TARTRATE
     Indication: PRODUCT USED FOR UNKNOWN INDICATION
     Dates: start: 201708
  17. MODOPAR 100/25 [Concomitant]
     Indication: MUSCULOSKELETAL STIFFNESS
     Route: 048
     Dates: start: 200904, end: 201711
  18. MODOPAR 100/25 [Concomitant]
     Route: 048
     Dates: start: 201804
  19. LAROXYL [Concomitant]
     Active Substance: AMITRIPTYLINE HYDROCHLORIDE
     Indication: PRODUCT USED FOR UNKNOWN INDICATION
     Dates: start: 201708
  20. TASMAR 100 MG, COMPRIM? PELLICUL? [Concomitant]
     Indication: PRODUCT USED FOR UNKNOWN INDICATION
     Route: 048
     Dates: start: 201711

REACTIONS (6)
  - Organ failure [Fatal]
  - Hypoaesthesia [Recovering/Resolving]
  - Paraesthesia [Recovering/Resolving]
  - Pain in extremity [Recovering/Resolving]
  - Septic shock [Fatal]
  - Peripheral sensorimotor neuropathy [Not Recovered/Not Resolved]

NARRATIVE: CASE EVENT DATE: 201712
